FAERS Safety Report 6549985-8 (Version None)
Quarter: 2010Q1

REPORT INFORMATION
  Report Type: 
  Country: None (occurrence: None)
  Receive Date: 20100125
  Receipt Date: 20100120
  Transmission Date: 20100710
  Serious: Yes (Hospitalization)
  Sender: FDA-Public Use
  Company Number: AR-BRISTOL-MYERS SQUIBB COMPANY-14840268

PATIENT
  Age: 67 Year
  Sex: Female

DRUGS (5)
  1. ORENCIA [Suspect]
     Indication: RHEUMATOID ARTHRITIS
     Dosage: LAST INFUSION ON 28AUG09
     Route: 042
     Dates: start: 20081016
  2. CALCIUM + VITAMIN D [Concomitant]
     Route: 048
  3. IBANDRONATE SODIUM [Concomitant]
     Route: 048
  4. PREDNISONE TAB [Concomitant]
     Route: 048
  5. ASPIRIN [Concomitant]
     Route: 048

REACTIONS (4)
  - ARTHRALGIA [None]
  - ISCHAEMIC STROKE [None]
  - PARAESTHESIA [None]
  - SYNOVITIS [None]
